FAERS Safety Report 7275837-4 (Version None)
Quarter: 2011Q1

REPORT INFORMATION
  Report Type: 
  Country: None (occurrence: None)
  Receive Date: 20110204
  Receipt Date: 20110202
  Transmission Date: 20110831
  Serious: Yes (Death)
  Sender: FDA-Public Use
  Company Number: CA-ABBOTT-11P-028-0702243-00

PATIENT
  Sex: Female
  Weight: 54.48 kg

DRUGS (2)
  1. ELTROXIN [Concomitant]
     Indication: THYROID DISORDER
     Route: 048
     Dates: start: 19460101
  2. HUMIRA [Suspect]
     Indication: COLITIS ULCERATIVE
     Route: 058
     Dates: start: 20100322

REACTIONS (1)
  - DEATH [None]
